FAERS Safety Report 7473630-0 (Version None)
Quarter: 2011Q2

REPORT INFORMATION
  Report Type: 
  Country: None (occurrence: None)
  Receive Date: 20110511
  Receipt Date: 20110510
  Transmission Date: 20111010
  Serious: Yes (Hospitalization, Other)
  Sender: FDA-Public Use
  Company Number: US-TEVA-272327USA

PATIENT
  Age: 63 Year
  Sex: Male
  Weight: 104.42 kg

DRUGS (11)
  1. INVESTIGATIONAL DRUG [Suspect]
     Indication: RHEUMATOID ARTHRITIS
     Dosage: 20 MILLIGRAM;
     Route: 048
     Dates: start: 20100819, end: 20110228
  2. METOPROLOL SUCCINATE [Concomitant]
     Dates: start: 20100819
  3. ZOLPIDEM [Concomitant]
     Dates: start: 20110202
  4. AZITHROMYCIN [Concomitant]
     Dates: start: 20110228, end: 20110302
  5. PANTOPRAZOLE [Concomitant]
     Indication: PROPHYLAXIS
     Dates: start: 20110301
  6. MULTI-VITAMINS [Concomitant]
     Dates: start: 20040101
  7. TYLOX                              /00446701/ [Concomitant]
     Indication: PAIN
     Dates: start: 20110301
  8. SIMVASTATIN [Suspect]
     Indication: HYPERCHOLESTEROLAEMIA
     Dosage: 20 MILLIGRAM;
     Route: 048
     Dates: start: 20080615, end: 20110302
  9. METHOTREXATE SODIUM [Suspect]
     Indication: RHEUMATOID ARTHRITIS
     Dosage: 2.8571 MILLIGRAM;
     Route: 048
     Dates: start: 20090915, end: 20110302
  10. FOLIC ACID [Concomitant]
     Dates: start: 20050311
  11. ACETYL SALICYLIC ACID USP BAT [Concomitant]
     Dates: start: 20080615

REACTIONS (2)
  - SMALL CELL LUNG CANCER METASTATIC [None]
  - LIVER FUNCTION TEST ABNORMAL [None]
